FAERS Safety Report 4808862-0 (Version None)
Quarter: 2005Q4

REPORT INFORMATION
  Report Type: 
  Country: None (occurrence: None)
  Receive Date: 20051025
  Receipt Date: 20051012
  Transmission Date: 20060501
  Serious: Yes (Hospitalization)
  Sender: FDA-Public Use
  Company Number: AU-JNJFOC-20051004325

PATIENT
  Sex: Female

DRUGS (18)
  1. TRAMADOL HYDROCHLORIDE [Suspect]
     Indication: PAIN
     Dosage: AS REQUIRED
     Route: 065
  2. CARBAMAZEPINE [Suspect]
     Indication: PAIN
     Route: 048
  3. HYDROCHLOROTHIAZIDE / IRBESARTAN [Suspect]
     Route: 048
  4. FRUSEMIDE [Suspect]
     Indication: DRUG USE FOR UNKNOWN INDICATION
     Route: 065
  5. FELODIPINE [Concomitant]
     Route: 065
  6. SOLPRIN [Concomitant]
     Route: 065
  7. METOPROLOL TARTRATE [Concomitant]
     Route: 065
  8. NITRODERM [Concomitant]
     Indication: ANGINA PECTORIS
     Route: 065
  9. OMEPRAZOLE [Concomitant]
     Route: 065
  10. ANGININE [Concomitant]
     Indication: ANGINA PECTORIS
     Route: 065
  11. QUININE [Concomitant]
     Route: 065
  12. CODEINE PHOSPHATE/PARACETEMOL [Concomitant]
     Route: 065
  13. CODEINE PHOSPHATE/PARACETEMOL [Concomitant]
     Indication: PAIN
     Route: 065
  14. PARACETEMOL [Concomitant]
     Indication: PAIN
     Route: 065
  15. FOSAMAX [Concomitant]
     Indication: BONE DISORDER
     Route: 065
  16. PULMICORT [Concomitant]
     Indication: ASTHMA
     Route: 065
  17. BRICANYL [Concomitant]
     Indication: ASTHMA
     Route: 065
  18. ERGOCALCIFEROL [Concomitant]
     Indication: BONE DISORDER
     Route: 065

REACTIONS (6)
  - CONFUSIONAL STATE [None]
  - DIZZINESS [None]
  - HYPONATRAEMIA [None]
  - INAPPROPRIATE ANTIDIURETIC HORMONE SECRETION [None]
  - MEMORY IMPAIRMENT [None]
  - POLYDIPSIA [None]
